FAERS Safety Report 4349753-1 (Version None)
Quarter: 2004Q2

REPORT INFORMATION
  Report Type: 
  Country: None (occurrence: None)
  Receive Date: 20040426
  Receipt Date: 20040412
  Transmission Date: 20050107
  Serious: Yes (Other)
  Sender: FDA-Public Use
  Company Number: 2004018273

PATIENT
  Age: 71 Year
  Sex: Male

DRUGS (6)
  1. VIAGRA [Suspect]
     Indication: ERECTILE DYSFUNCTION
     Dosage: 50 MG
     Dates: start: 19980420
  2. ACETYLSALICYLIOC ACID (ACETYLSALICYLIC ACID) [Concomitant]
  3. ATORVASTATIN (ATORVASTATIN) [Concomitant]
  4. LISINOPRIL [Concomitant]
  5. FOSINOPRIL SOIDUM (FOSINOPRIL SODIUM) [Concomitant]
  6. DIURETICS (DIURETICS) [Concomitant]

REACTIONS (16)
  - BLINDNESS [None]
  - CAROTID ARTERY OCCLUSION [None]
  - CATARACT [None]
  - CEREBELLAR ATROPHY [None]
  - CEREBRAL ATROPHY [None]
  - CEREBRAL ISCHAEMIA [None]
  - HEADACHE [None]
  - NUCLEAR MAGNETIC RESONANCE IMAGING BRAIN ABNORMAL [None]
  - OPTIC ATROPHY [None]
  - OPTIC NEUROPATHY [None]
  - PAPILLOEDEMA [None]
  - PUPILLARY REFLEX IMPAIRED [None]
  - RETINAL ARTERY EMBOLISM [None]
  - RETINAL HAEMORRHAGE [None]
  - VISUAL FIELD DEFECT [None]
  - VITREOUS DETACHMENT [None]
